FAERS Safety Report 8140893-8 (Version None)
Quarter: 2012Q1

REPORT INFORMATION
  Report Type: 
  Country: None (occurrence: None)
  Receive Date: 20120216
  Receipt Date: 20120209
  Transmission Date: 20120608
  Serious: Yes (Other)
  Sender: FDA-Public Use
  Company Number: US-BAYER-2011-065234

PATIENT
  Age: 29 Year
  Sex: Female
  Weight: 83.9 kg

DRUGS (4)
  1. IBUPROFEN (ADVIL) [Concomitant]
  2. YASMIN [Suspect]
     Indication: CONTRACEPTION
     Dosage: UNK
     Dates: start: 20040501, end: 20050801
  3. YASMIN [Suspect]
     Dosage: UNK
     Dates: start: 20071201, end: 20080730
  4. DROSPIRENONE AND ETHINYL ESTRADIOL [Suspect]
     Indication: CONTRACEPTION
     Dosage: UNK
     Dates: start: 20080730, end: 20090612

REACTIONS (1)
  - DEEP VEIN THROMBOSIS [None]
